FAERS Safety Report 4431345-7 (Version None)
Quarter: 2004Q3

REPORT INFORMATION
  Report Type: 
  Country: None (occurrence: None)
  Receive Date: 20040824
  Receipt Date: 20040804
  Transmission Date: 20050211
  Serious: Yes (Hospitalization)
  Sender: FDA-Public Use
  Company Number: JP-JNJFOC-20040402957

PATIENT
  Sex: Male
  Weight: 45 kg

DRUGS (11)
  1. LEVOFLOXACIN [Suspect]
     Indication: CYSTITIS
     Route: 049
     Dates: start: 20040311, end: 20040325
  2. PANALDINE [Suspect]
     Indication: PROPHYLAXIS
     Route: 049
     Dates: start: 20040302, end: 20040401
  3. HEPARIN [Concomitant]
  4. ASPIRIN [Concomitant]
     Route: 049
  5. ASPIRIN [Concomitant]
     Indication: ACUTE MYOCARDIAL INFARCTION
     Route: 049
  6. DIOVAN [Concomitant]
     Indication: HYPERTENSION
     Route: 049
  7. LOCHOL [Concomitant]
     Route: 049
  8. AMLODIN [Concomitant]
     Indication: HYPERTENSION
     Route: 049
  9. LASIX [Concomitant]
     Route: 042
  10. LEPETAN [Concomitant]
     Route: 042
  11. ATARAX [Concomitant]
     Route: 042

REACTIONS (4)
  - ANAEMIA [None]
  - HAEMOLYTIC ANAEMIA [None]
  - THROMBOTIC THROMBOCYTOPENIC PURPURA [None]
  - URINARY SEDIMENT ABNORMAL [None]
